FAERS Safety Report 6986566-6 (Version None)
Quarter: 2010Q3

REPORT INFORMATION
  Report Type: 
  Country: None (occurrence: None)
  Receive Date: 20100915
  Receipt Date: 20090714
  Transmission Date: 20110219
  Serious: No
  Sender: FDA-Public Use
  Company Number: US-WYE-H10158409

PATIENT
  Sex: Female
  Weight: 63.56 kg

DRUGS (3)
  1. PRISTIQ [Suspect]
     Indication: DEPRESSION
     Route: 048
     Dates: start: 20090101, end: 20090501
  2. PRISTIQ [Suspect]
     Dosage: TAPERED DOSE
     Route: 048
     Dates: start: 20090501, end: 20090610
  3. ACETYLSALICYLIC ACID [Concomitant]
     Dosage: TAKES OCCASSIONALLY

REACTIONS (3)
  - CONTUSION [None]
  - DRUG WITHDRAWAL SYNDROME [None]
  - PARAESTHESIA [None]
